FAERS Safety Report 8012709-1 (Version None)
Quarter: 2011Q4

REPORT INFORMATION
  Report Type: 
  Country: None (occurrence: None)
  Receive Date: 20111229
  Receipt Date: 20110203
  Transmission Date: 20120403
  Serious: No
  Sender: FDA-Public Use
  Company Number: US-MYLANLABS-2011S1002574

PATIENT
  Age: 52 Year
  Sex: Male
  Weight: 95.26 kg

DRUGS (5)
  1. PHENOBARBITAL TAB [Interacting]
     Indication: CONVULSION
  2. CITALOPRAM HYDROBROMIDE [Interacting]
     Indication: GRAND MAL CONVULSION
  3. BENEFIBER /00677201/ [Interacting]
     Indication: CONSTIPATION
     Dosage: TWO TSB,
     Route: 048
     Dates: start: 20110106, end: 20110110
  4. VICODIN [Concomitant]
  5. PHENYTOIN [Suspect]
     Indication: GRAND MAL CONVULSION
     Dates: start: 20110101

REACTIONS (8)
  - ASTHENIA [None]
  - SOMNOLENCE [None]
  - DEPRESSED LEVEL OF CONSCIOUSNESS [None]
  - INHIBITORY DRUG INTERACTION [None]
  - FEELING ABNORMAL [None]
  - LETHARGY [None]
  - DIZZINESS [None]
  - DRUG EFFECT DECREASED [None]
